FAERS Safety Report 4500286-9 (Version None)
Quarter: 2004Q3

REPORT INFORMATION
  Report Type: 
  Country: None (occurrence: None)
  Receive Date: 20040927
  Receipt Date: 20040810
  Transmission Date: 20050211
  Serious: No
  Sender: FDA-Public Use
  Company Number: USA040772806

PATIENT
  Age: 15 Year
  Sex: Female
  Weight: 66 kg

DRUGS (5)
  1. STRATTERA [Suspect]
     Indication: ATTENTION DEFICIT/HYPERACTIVITY DISORDER
     Dosage: 50 MG DAY
     Dates: start: 20040628
  2. DDAVP [Concomitant]
  3. CONCERTA [Concomitant]
  4. LEXAPRO [Concomitant]
  5. SEROQUEL [Concomitant]

REACTIONS (4)
  - CONSTIPATION [None]
  - DRY MOUTH [None]
  - EPISTAXIS [None]
  - FATIGUE [None]
